FAERS Safety Report 24420715 (Version 1)
Quarter: 2024Q4

REPORT INFORMATION
  Report Type: Spontaneous
  Country: US (occurrence: US)
  Receive Date: 20241010
  Receipt Date: 20241010
  Transmission Date: 20250114
  Serious: Yes (Hospitalization, Other)
  Sender: ALEMBIC
  Company Number: US-ALEMBIC PHARMACUETICALS LIMITED-2024SCAL001441

PATIENT

DRUGS (4)
  1. QUETIAPINE FUMARATE [Interacting]
     Active Substance: QUETIAPINE FUMARATE
     Indication: Agitation
     Dosage: UNK
     Route: 065
  2. LINEZOLID [Interacting]
     Active Substance: LINEZOLID
     Indication: Product used for unknown indication
     Dosage: UNK
  3. OLANZAPINE [Suspect]
     Active Substance: OLANZAPINE
     Indication: Agitation
     Dosage: UNK
     Route: 065
  4. HALOPERIDOL [Suspect]
     Active Substance: HALOPERIDOL
     Indication: Agitation
     Dosage: UNK
     Route: 065

REACTIONS (15)
  - Neuroleptic malignant syndrome [Recovering/Resolving]
  - Blood lactate dehydrogenase increased [Recovering/Resolving]
  - Pyrexia [Recovering/Resolving]
  - Hyperthermia [Recovering/Resolving]
  - Tachycardia [Recovering/Resolving]
  - Labile blood pressure [Recovering/Resolving]
  - Tachypnoea [Recovering/Resolving]
  - Lethargy [Recovering/Resolving]
  - Mydriasis [Recovering/Resolving]
  - Muscle rigidity [Recovering/Resolving]
  - Blood creatine phosphokinase increased [Recovering/Resolving]
  - Blood creatinine increased [Recovering/Resolving]
  - Transaminases increased [Recovering/Resolving]
  - Respiratory alkalosis [Recovering/Resolving]
  - Drug interaction [Unknown]
